FAERS Safety Report 5706592-4 (Version None)
Quarter: 2008Q2

REPORT INFORMATION
  Report Type: 
  Country: None (occurrence: None)
  Receive Date: 20080414
  Receipt Date: 20020207
  Transmission Date: 20081010
  Serious: Yes (Death)
  Sender: FDA-Public Use
  Company Number: 2002IC000066

PATIENT
  Age: 9 Year
  Sex: Female
  Weight: 25 kg

DRUGS (3)
  1. ANCOTIL (FLUCYTOSINE) [Suspect]
     Indication: FUNGAL INFECTION
     Dosage: 5 GM; IV
     Route: 042
     Dates: start: 20001130, end: 20001207
  2. AMBISOME [Suspect]
     Indication: BRONCHOPULMONARY ASPERGILLOSIS
     Dosage: 25 MG; IV, 75 MG; IV
     Route: 042
     Dates: start: 20001120, end: 20001121
  3. AMBISOME [Suspect]
     Indication: BRONCHOPULMONARY ASPERGILLOSIS
     Dosage: 25 MG; IV, 75 MG; IV
     Route: 042
     Dates: start: 20001121, end: 20001207

REACTIONS (5)
  - BRONCHOPULMONARY ASPERGILLOSIS [None]
  - CHEST PAIN [None]
  - OEDEMA PERIPHERAL [None]
  - RESPIRATORY DISORDER [None]
  - RESPIRATORY FAILURE [None]
